FAERS Safety Report 6680916-6 (Version None)
Quarter: 2010Q2

REPORT INFORMATION
  Report Type: 
  Country: None (occurrence: None)
  Receive Date: 20100414
  Receipt Date: 20100408
  Transmission Date: 20101027
  Serious: Yes (Death)
  Sender: FDA-Public Use
  Company Number: DE-JNJFOC-20100401980

PATIENT
  Sex: Male

DRUGS (5)
  1. PROPULSIN [Suspect]
     Indication: DRUG USE FOR UNKNOWN INDICATION
     Dosage: MORE THAN 12 YEARS AGO
     Route: 065
  2. ERYPO [Suspect]
     Indication: DRUG USE FOR UNKNOWN INDICATION
     Dosage: MORE THAN 12 YEARS AGO
     Route: 065
  3. DIGIMERCK [Concomitant]
     Route: 065
  4. NEXIUM [Concomitant]
     Route: 065
  5. ALL OTHER THERAPEUTIC PRODUCTS [Concomitant]
     Route: 065

REACTIONS (1)
  - DEATH [None]
